FAERS Safety Report 7735076-7 (Version None)
Quarter: 2011Q3

REPORT INFORMATION
  Report Type: 
  Country: None (occurrence: None)
  Receive Date: 20110907
  Receipt Date: 20110825
  Transmission Date: 20111222
  Serious: Yes (Life-Threatening, Other)
  Sender: FDA-Public Use
  Company Number: CELGENEUS-087-21880-11012827

PATIENT
  Sex: Male
  Weight: 70.4 kg

DRUGS (15)
  1. MAGMITT [Concomitant]
     Indication: CONSTIPATION
     Dosage: 660 MILLIGRAM
     Route: 048
     Dates: start: 20100702, end: 20100816
  2. DEXAMETHASONE [Concomitant]
     Dosage: 2 MILLIGRAM
     Route: 048
     Dates: start: 20100811, end: 20100814
  3. MUCOSTA [Concomitant]
     Indication: PROPHYLAXIS
     Dosage: 300 MILLIGRAM
     Route: 048
     Dates: start: 20091218, end: 20100817
  4. BACTRIM [Concomitant]
     Indication: PROPHYLAXIS
     Dosage: 2 TABLET
     Route: 048
     Dates: start: 20100607, end: 20100816
  5. MEROPENEM [Concomitant]
     Indication: PROPHYLAXIS
     Dosage: 1.5 GRAM
     Route: 041
     Dates: start: 20100818, end: 20100824
  6. DEXAMETHASONE [Concomitant]
     Dosage: 20 MILLIGRAM
     Route: 048
     Dates: start: 20100815, end: 20100817
  7. LEVOFLOXACIN [Concomitant]
     Indication: PROPHYLAXIS
     Dosage: 500 MILLIGRAM
     Route: 048
     Dates: start: 20100716, end: 20100814
  8. DEXAMETHASONE [Concomitant]
     Dosage: 20 MILLIGRAM
     Route: 041
     Dates: start: 20100807, end: 20100810
  9. BIO-THREE [Concomitant]
     Indication: PROPHYLAXIS
     Dosage: 3 TABLET
     Route: 048
     Dates: start: 20091218, end: 20100817
  10. REVLIMID [Suspect]
     Dosage: 15 MILLIGRAM
     Route: 048
     Dates: start: 20100809, end: 20100815
  11. DEXAMETHASONE [Concomitant]
     Indication: MULTIPLE MYELOMA
     Dosage: 20 MILLIGRAM
     Route: 048
     Dates: start: 20100730, end: 20100802
  12. ITRACONAZOLE [Concomitant]
     Indication: PROPHYLAXIS
     Dosage: 100 MILLIGRAM
     Route: 048
     Dates: start: 20100521, end: 20100817
  13. REVLIMID [Suspect]
     Indication: MULTIPLE MYELOMA
     Dosage: 25 MILLIGRAM
     Route: 048
     Dates: start: 20100730, end: 20100805
  14. FENTANYL [Concomitant]
     Indication: MULTIPLE MYELOMA
     Dosage: 2.1 MILLIGRAM
     Route: 062
     Dates: start: 20100806, end: 20100825
  15. FLUCONAZOLE [Concomitant]
     Indication: PROPHYLAXIS
     Dosage: 200 MILLIGRAM
     Route: 041
     Dates: start: 20100819, end: 20100824

REACTIONS (13)
  - CONVULSION [None]
  - ANAEMIA [None]
  - NAUSEA [None]
  - PYREXIA [None]
  - BRONCHOPNEUMONIA [None]
  - HYPOALBUMINAEMIA [None]
  - HYPERGLYCAEMIA [None]
  - GASTRIC ULCER [None]
  - GASTRIC HAEMORRHAGE [None]
  - PULMONARY HAEMORRHAGE [None]
  - THROMBOCYTOPENIA [None]
  - NEUTROPENIA [None]
  - VOMITING [None]
